FAERS Safety Report 5879322-3 (Version None)
Quarter: 2008Q3

REPORT INFORMATION
  Report Type: 
  Country: None (occurrence: None)
  Receive Date: 20080910
  Receipt Date: 20080910
  Transmission Date: 20090109
  Serious: No
  Sender: FDA-Public Use
  Company Number: None

PATIENT
  Sex: Male

DRUGS (2)
  1. LEVAQUIN [Suspect]
     Indication: UPPER RESPIRATORY TRACT INFECTION
     Dosage: 500 MG ONCE DAILY ORAL
     Route: 048
     Dates: start: 20080902, end: 20080909
  2. WARFARIN SODIUM [Suspect]
     Indication: HEART VALVE REPLACEMENT
     Dosage: 7 MG ONCE DAILY ORAL
     Route: 048
     Dates: start: 20080905, end: 20080909

REACTIONS (1)
  - INTERNATIONAL NORMALISED RATIO INCREASED [None]
